FAERS Safety Report 16342304 (Version 1)
Quarter: 2019Q2

REPORT INFORMATION
  Report Type: Spontaneous
  Country: US (occurrence: US)
  Receive Date: 20190416
  Receipt Date: 20190416
  Transmission Date: 20190711
  Serious: No
  Sender: FDA-Public Use
  Company Number: None

PATIENT
  Age: 32 Year
  Sex: Female

DRUGS (1)
  1. COSMEGEN [Suspect]
     Active Substance: DACTINOMYCIN
     Indication: ENDOMETRIAL CANCER
     Dates: start: 201904

REACTIONS (1)
  - Rhabdomyosarcoma [None]

NARRATIVE: CASE EVENT DATE: 20190416
